FAERS Safety Report 17537778 (Version 2)
Quarter: 2020Q1

REPORT INFORMATION
  Report Type: Spontaneous
  Country: JP (occurrence: JP)
  Receive Date: 20200313
  Receipt Date: 20200326
  Transmission Date: 20200409
  Serious: Yes (Hospitalization)
  Sender: FDA-Public Use
  Company Number: JP-ASTRAZENECA-2020SE36897

PATIENT
  Age: 70 Year
  Sex: Male

DRUGS (1)
  1. IMFINZI [Suspect]
     Active Substance: DURVALUMAB
     Indication: NON-SMALL CELL LUNG CANCER
     Route: 042
     Dates: end: 20200304

REACTIONS (3)
  - Lower gastrointestinal perforation [Unknown]
  - Malignant neoplasm progression [Unknown]
  - Intestinal metastasis [Unknown]

NARRATIVE: CASE EVENT DATE: 20200307
